FAERS Safety Report 5325787-5 (Version None)
Quarter: 2007Q2

REPORT INFORMATION
  Report Type: 
  Country: None (occurrence: None)
  Receive Date: 20070510
  Receipt Date: 20070424
  Transmission Date: 20071010
  Serious: Yes (Disabling)
  Sender: FDA-Public Use
  Company Number: FR-1161713

PATIENT
  Age: 47 Year
  Sex: Female

DRUGS (2)
  1. VEXOL [Suspect]
     Indication: KERATITIS INTERSTITIAL
     Dosage: EYE DROPS, SUSPENSION OPHTHALMIC
     Route: 047
     Dates: start: 20000215, end: 20000921
  2. TIMOLOL MALEATE [Concomitant]

REACTIONS (6)
  - ANGIOGRAM RETINA ABNORMAL [None]
  - BLINDNESS [None]
  - EYE PAIN [None]
  - INTRAOCULAR PRESSURE INCREASED [None]
  - RETINAL DYSTROPHY [None]
  - SCOTOMA [None]
